FAERS Safety Report 10586937 (Version 1)
Quarter: 2014Q4

REPORT INFORMATION
  Report Type: Spontaneous
  Country: IT (occurrence: IT)
  Receive Date: 20141117
  Receipt Date: 20141117
  Transmission Date: 20150529
  Serious: No
  Sender: FDA-Public Use
  Company Number: IT-TEVA-522415ISR

PATIENT
  Sex: Female

DRUGS (1)
  1. FLUOXETINE [Suspect]
     Active Substance: FLUOXETINE\FLUOXETINE HYDROCHLORIDE
     Indication: BIPOLAR II DISORDER
     Dosage: 20 MILLIGRAM DAILY;
     Route: 065
     Dates: start: 2008

REACTIONS (2)
  - Agitated depression [Recovered/Resolved]
  - Condition aggravated [Recovered/Resolved]
